FAERS Safety Report 9393337 (Version 1)
Quarter: 2013Q3

REPORT INFORMATION
  Report Type: Spontaneous
  Country: ZA (occurrence: ZA)
  Receive Date: 20130710
  Receipt Date: 20130710
  Transmission Date: 20140515
  Serious: Yes (Other)
  Sender: FDA-Public Use
  Company Number: ZA-PFIZER INC-2013199492

PATIENT
  Sex: Male

DRUGS (1)
  1. ASPAVOR [Suspect]
     Dosage: UNK
     Route: 048

REACTIONS (2)
  - Gout [Unknown]
  - Drug dose omission [Unknown]
